FAERS Safety Report 11564255 (Version 1)
Quarter: 2015Q3

REPORT INFORMATION
  Report Type: Spontaneous
  Country: US (occurrence: US)
  Receive Date: 20150916
  Receipt Date: 20150916
  Transmission Date: 20151125
  Serious: No
  Sender: FDA-Public Use
  Company Number: US-ELI_LILLY_AND_COMPANY-US200903001770

PATIENT
  Age: 84 Year
  Sex: Female

DRUGS (2)
  1. FORTEO [Suspect]
     Active Substance: TERIPARATIDE
     Dosage: 20 UG, DAILY (1/D)
     Dates: start: 200807
  2. PREDNISONE. [Concomitant]
     Active Substance: PREDNISONE

REACTIONS (8)
  - Injection site pain [Not Recovered/Not Resolved]
  - Pneumonia [Unknown]
  - Contusion [Not Recovered/Not Resolved]
  - Chronic obstructive pulmonary disease [Unknown]
  - Injection site bruising [Not Recovered/Not Resolved]
  - Pain in extremity [Not Recovered/Not Resolved]
  - Anger [Unknown]
  - Abdominal rigidity [Unknown]

NARRATIVE: CASE EVENT DATE: 200807
